FAERS Safety Report 5185503-7 (Version None)
Quarter: 2006Q4

REPORT INFORMATION
  Report Type: 
  Country: None (occurrence: None)
  Receive Date: 20061220
  Receipt Date: 20060725
  Transmission Date: 20070319
  Serious: No
  Sender: FDA-Public Use
  Company Number: CRS 002143770

PATIENT
  Sex: Female

DRUGS (1)
  1. NICODERM CQ [Suspect]
     Route: 062

REACTIONS (3)
  - CONTUSION [None]
  - OBSESSIVE THOUGHTS [None]
  - PRURITUS [None]
